FAERS Safety Report 5964519-4 (Version None)
Quarter: 2008Q4

REPORT INFORMATION
  Report Type: 
  Country: None (occurrence: None)
  Receive Date: 20081125
  Receipt Date: 20081117
  Transmission Date: 20090506
  Serious: No
  Sender: FDA-Public Use
  Company Number: DE-JNJFOC-20081103710

PATIENT
  Sex: Female

DRUGS (2)
  1. DURAGESIC-100 [Suspect]
     Indication: DRUG USE FOR UNKNOWN INDICATION
     Route: 062
  2. LYRICA [Concomitant]
     Indication: DRUG USE FOR UNKNOWN INDICATION
     Route: 065

REACTIONS (4)
  - DIZZINESS [None]
  - INAPPROPRIATE SCHEDULE OF DRUG ADMINISTRATION [None]
  - NAUSEA [None]
  - SLEEP DISORDER [None]
